FAERS Safety Report 11711375 (Version 1)
Quarter: 2015Q4

REPORT INFORMATION
  Report Type: Spontaneous
  Country: US (occurrence: US)
  Receive Date: 20151104
  Receipt Date: 20151104
  Transmission Date: 20160304
  Serious: No
  Sender: FDA-Public Use
  Company Number: US-ELI_LILLY_AND_COMPANY-US201103008758

PATIENT
  Sex: Female

DRUGS (1)
  1. FORTEO [Suspect]
     Active Substance: TERIPARATIDE
     Indication: OSTEOPOROSIS
     Dosage: 20 UG, QD

REACTIONS (7)
  - Nodule [Unknown]
  - Agitation [Unknown]
  - Tearfulness [Unknown]
  - Emotional disorder [Unknown]
  - Pruritus [Unknown]
  - Dementia Alzheimer^s type [Unknown]
  - Confusional state [Unknown]
